FAERS Safety Report 9357735 (Version 3)
Quarter: 2013Q3

REPORT INFORMATION
  Report Type: Spontaneous
  Country: GB (occurrence: GB)
  Receive Date: 20130620
  Receipt Date: 20130716
  Transmission Date: 20140515
  Serious: Yes (Other)
  Sender: FDA-Public Use
  Company Number: GB-PFIZER INC-2013181864

PATIENT
  Age: 23 Year
  Sex: Female

DRUGS (4)
  1. IBUPROFEN [Suspect]
     Dates: start: 20130605
  2. OMEPRAZOLE [Concomitant]
     Dates: start: 20130415, end: 20130513
  3. CLOTRIMAZOLE [Concomitant]
     Dates: start: 20130604
  4. CETIRIZINE [Concomitant]
     Dates: start: 20130605

REACTIONS (1)
  - Drug eruption [Recovering/Resolving]
